FAERS Safety Report 8758017 (Version 1)
Quarter: 2012Q4

REPORT INFORMATION
  Report Type: 
  Country: FR (occurrence: FR)
  Receive Date: 20120828
  Receipt Date: 20120828
  Transmission Date: 20130627
  Serious: Yes (Hospitalization)
  Sender: FDA-Public Use
  Company Number: FR-PFIZER INC-2012205394

PATIENT
  Age: 36 Year
  Sex: Female

DRUGS (24)
  1. FLUOROURACILE PFIZER [Suspect]
     Indication: BREAST CANCER
     Dosage: 500 mg/m2, cyclic
     Route: 042
     Dates: start: 20120615, end: 20120615
  2. EPIRUBICIN [Concomitant]
     Indication: BREAST CANCER
     Dosage: UNK
     Dates: start: 20120615
  3. CYCLOPHOSPHAMIDE [Concomitant]
     Indication: BREAST CANCER
     Dosage: UNK
     Dates: start: 20120615
  4. EMEND [Concomitant]
  5. SOLU-MEDROL [Concomitant]
  6. ZOPHREN [Concomitant]
  7. UVEDOSE [Concomitant]
  8. SODIUM BICARBONATE [Concomitant]
  9. MYCOSTATINE [Concomitant]
  10. TOPALGIC [Concomitant]
  11. OLMETEC [Concomitant]
  12. STAGID [Concomitant]
  13. COLCHICINE [Concomitant]
  14. GAVISCON [Concomitant]
  15. INEXIUM [Concomitant]
  16. LEXOMIL [Concomitant]
  17. LOXEN [Concomitant]
  18. EUPANTOL [Concomitant]
  19. ACUPAN [Concomitant]
  20. PARACETAMOL [Concomitant]
  21. CONTRAMAL [Concomitant]
  22. FRAXODI [Concomitant]
  23. AMOXYCILLIN/CLAVULANIC ACID [Concomitant]
  24. SODIUM CHLORIDE [Concomitant]

REACTIONS (1)
  - Deep vein thrombosis [Recovering/Resolving]
